FAERS Safety Report 6914287-4 (Version None)
Quarter: 2010Q3

REPORT INFORMATION
  Report Type: 
  Country: None (occurrence: None)
  Receive Date: 20100809
  Receipt Date: 20100730
  Transmission Date: 20110219
  Serious: Yes (Other)
  Sender: FDA-Public Use
  Company Number: B0667249A

PATIENT
  Age: 48 Year
  Sex: Female

DRUGS (5)
  1. FROSINOR [Suspect]
     Indication: ANXIETY DISORDER
     Dosage: 40MG PER DAY
     Route: 048
     Dates: start: 20090929, end: 20100218
  2. HALOPERIDOL [Suspect]
     Indication: AGITATION
     Dosage: 5MG PER DAY
     Route: 042
     Dates: start: 20100214, end: 20100214
  3. RISPERDAL [Suspect]
     Dosage: 6MG PER DAY
     Route: 048
     Dates: start: 20090101, end: 20100210
  4. SEROQUEL [Suspect]
     Dosage: 900MG PER DAY
     Route: 048
     Dates: start: 20090101, end: 20100210
  5. TIAPRIZAL [Suspect]
     Indication: AGITATION
     Dosage: 100MG PER DAY
     Route: 042
     Dates: start: 20100214

REACTIONS (1)
  - NEUROLEPTIC MALIGNANT SYNDROME [None]
